FAERS Safety Report 26207909 (Version 1)
Quarter: 2025Q4

REPORT INFORMATION
  Report Type: Spontaneous
  Country: US (occurrence: None)
  Receive Date: 20251224
  Receipt Date: 20251224
  Transmission Date: 20260118
  Serious: No
  Sender: FDA-CTU
  Company Number: None

PATIENT
  Age: 42 Year
  Sex: Female

DRUGS (1)
  1. DUPIXENT [Suspect]
     Active Substance: DUPILUMAB
     Indication: Asthma
     Dosage: 4MG EVERY TWO WEEKS SUBCUTANEOUS
     Route: 058
     Dates: start: 20250311

REACTIONS (7)
  - Chronic obstructive pulmonary disease [None]
  - Asthma [None]
  - Headache [None]
  - Dizziness [None]
  - Chest pain [None]
  - Blood pressure abnormal [None]
  - Oxygen saturation decreased [None]

NARRATIVE: CASE EVENT DATE: 20251219
